FAERS Safety Report 18981048 (Version 3)
Quarter: 2021Q2

REPORT INFORMATION
  Report Type: Report from Study
  Country: IL (occurrence: IL)
  Receive Date: 20210308
  Receipt Date: 20210408
  Transmission Date: 20210717
  Serious: Yes (Hospitalization, Other)
  Sender: FDA-Public Use
  Company Number: IL-TAKEDA-2021TUS013579

PATIENT
  Age: 60 Year
  Sex: Female

DRUGS (7)
  1. VELAGLUCERASE ALFA [Suspect]
     Active Substance: VELAGLUCERASE ALFA
     Dosage: 30 U/KG, Q2WEEKS
     Route: 065
     Dates: start: 20071027, end: 20080701
  2. VELAGLUCERASE ALFA [Suspect]
     Active Substance: VELAGLUCERASE ALFA
     Dosage: 30 U/KG, Q2WEEKS
     Route: 065
     Dates: start: 201212, end: 201612
  3. VELAGLUCERASE ALFA [Suspect]
     Active Substance: VELAGLUCERASE ALFA
     Dosage: 85 MILLIGRAM, QD
     Route: 065
     Dates: start: 20170822, end: 20180605
  4. VELAGLUCERASE ALFA [Suspect]
     Active Substance: VELAGLUCERASE ALFA
     Dosage: 100 MILLIGRAM, TID
     Route: 065
     Dates: start: 19981117, end: 20021120
  5. VELAGLUCERASE ALFA [Suspect]
     Active Substance: VELAGLUCERASE ALFA
     Indication: GAUCHER^S DISEASE
     Dosage: 30 MILLIGRAM/KILOGRAM, 2/WEEK
     Route: 042
     Dates: start: 201212, end: 201612
  6. VELAGLUCERASE ALFA [Suspect]
     Active Substance: VELAGLUCERASE ALFA
     Dosage: 60 MICROGRAM/KILOGRAM
     Route: 042
     Dates: start: 201701, end: 201706
  7. VELAGLUCERASE ALFA [Suspect]
     Active Substance: VELAGLUCERASE ALFA
     Dosage: 60 U/KG, Q2WEEKS
     Route: 065
     Dates: start: 201701, end: 201706

REACTIONS (2)
  - Appendicitis [Recovered/Resolved]
  - Splenomegaly [Recovered/Resolved]

NARRATIVE: CASE EVENT DATE: 20151117
